FAERS Safety Report 9184747 (Version 2)
Quarter: 2013Q1

REPORT INFORMATION
  Report Type: Report from Study
  Country: IE (occurrence: IE)
  Receive Date: 20130325
  Receipt Date: 20130326
  Transmission Date: 20140127
  Serious: Yes (Death)
  Sender: FDA-Public Use
  Company Number: IE-ROCHE-1201640

PATIENT
  Sex: Female

DRUGS (10)
  1. TRASTUZUMAB [Suspect]
     Indication: BREAST CANCER
     Route: 065
  2. CAPECITABINE [Suspect]
     Indication: BREAST CANCER
     Route: 065
  3. DOCETAXEL [Suspect]
     Indication: BREAST CANCER
     Route: 065
  4. LAPATINIB [Suspect]
     Indication: BREAST CANCER
     Route: 065
  5. ADRIAMYCIN [Concomitant]
  6. CYCLOPHOSPHAMIDE [Concomitant]
  7. ARIMIDEX [Concomitant]
  8. AROMASIN [Concomitant]
     Route: 065
     Dates: start: 201201
  9. NAVELBINE [Concomitant]
     Route: 065
     Dates: start: 201206
  10. MYOCET [Concomitant]

REACTIONS (3)
  - Disease progression [Fatal]
  - Vasculitic rash [Unknown]
  - Skin lesion [Unknown]
